FAERS Safety Report 7501619-1 (Version None)
Quarter: 2011Q2

REPORT INFORMATION
  Report Type: 
  Country: None (occurrence: None)
  Receive Date: 20110524
  Receipt Date: 20110512
  Transmission Date: 20111010
  Serious: Yes (Hospitalization)
  Sender: FDA-Public Use
  Company Number: TR-WATSON-2011-07058

PATIENT
  Age: 61 Year
  Sex: Female

DRUGS (3)
  1. LAMOTRIGINE [Suspect]
     Indication: DEPRESSION
     Route: 048
  2. SULPIRIDE [Suspect]
     Indication: ANTIDEPRESSANT THERAPY
  3. TIANEPTINE [Suspect]
     Indication: ANTIDEPRESSANT THERAPY

REACTIONS (1)
  - TARDIVE DYSKINESIA [None]
